FAERS Safety Report 18364547 (Version 1)
Quarter: 2020Q3

REPORT INFORMATION
  Report Type: Spontaneous
  Country: US (occurrence: US)
  Receive Date: 20200928
  Receipt Date: 20200928
  Transmission Date: 20201103
  Serious: No
  Sender: FDA-Public Use
  Company Number: None

PATIENT
  Age: 3 Decade
  Sex: Female

DRUGS (2)
  1. ARBIDOL [Suspect]
     Active Substance: UMIFENOVIR
     Indication: COVID-19
     Dates: start: 2020
  2. RIBAVIRIN. [Suspect]
     Active Substance: RIBAVIRIN

REACTIONS (7)
  - Ageusia [None]
  - Off label use [None]
  - Rhinorrhoea [None]
  - Headache [None]
  - Nasal congestion [None]
  - Anosmia [None]
  - Taste disorder [None]
